FAERS Safety Report 16641258 (Version 1)
Quarter: 2019Q3

REPORT INFORMATION
  Report Type: Spontaneous
  Country: US (occurrence: US)
  Receive Date: 20190729
  Receipt Date: 20190729
  Transmission Date: 20191004
  Serious: Yes (Other)
  Sender: FDA-Public Use
  Company Number: US-SUN PHARMACEUTICAL INDUSTRIES LTD-2019R1-197872

PATIENT
  Age: 36 Year
  Sex: Female

DRUGS (2)
  1. OXALIPLATIN. [Suspect]
     Active Substance: OXALIPLATIN
     Indication: NEOPLASM MALIGNANT
     Dosage: UNK
     Route: 065
  2. CAPECITABINE. [Concomitant]
     Active Substance: CAPECITABINE
     Indication: NEOPLASM MALIGNANT
     Route: 065

REACTIONS (7)
  - Platelet count abnormal [Recovered/Resolved]
  - Gingival bleeding [Unknown]
  - Mouth haemorrhage [Unknown]
  - Immune thrombocytopenic purpura [Unknown]
  - Haemoglobin decreased [Unknown]
  - Epistaxis [Unknown]
  - Prothrombin level abnormal [Unknown]
